FAERS Safety Report 26065053 (Version 1)
Quarter: 2025Q4

REPORT INFORMATION
  Report Type: Spontaneous
  Country: EU (occurrence: EU)
  Receive Date: 20251119
  Receipt Date: 20251119
  Transmission Date: 20260117
  Serious: Yes (Other)
  Sender: JOHNSON AND JOHNSON
  Company Number: EU-JNJFOC-20251151263

PATIENT
  Age: 82 Year
  Sex: Male

DRUGS (1)
  1. ERLEADA [Suspect]
     Active Substance: APALUTAMIDE
     Indication: Hormone-dependent prostate cancer
     Dates: start: 20250213

REACTIONS (5)
  - Metastases to bone [Unknown]
  - Herpes zoster [Unknown]
  - Rectal haemorrhage [Unknown]
  - Rash [Unknown]
  - Pain of skin [Unknown]

NARRATIVE: CASE EVENT DATE: 20250521
